FAERS Safety Report 19377175 (Version 2)
Quarter: 2021Q2

REPORT INFORMATION
  Report Type: Spontaneous
  Country: US (occurrence: US)
  Receive Date: 20210604
  Receipt Date: 20210608
  Transmission Date: 20210717
  Serious: Yes (Life-Threatening, Hospitalization, Other)
  Sender: FDA-Public Use
  Company Number: US-009507513-2105USA004963

PATIENT
  Age: 62 Year
  Sex: Female
  Weight: 84.76 kg

DRUGS (5)
  1. OMEPRAZOLE. [Concomitant]
     Active Substance: OMEPRAZOLE
     Indication: GASTROOESOPHAGEAL REFLUX DISEASE
     Dosage: 20 MG, ONCE DAILY, 20 MG TOTAL DAILY DOSAGE
     Route: 048
  2. PROMETHAZINE [Concomitant]
     Active Substance: PROMETHAZINE HYDROCHLORIDE
     Indication: NAUSEA
     Dosage: 12.5 MG, EVERY 4 HOURS, AS NEEDED (Q4H PRN)
     Route: 048
  3. PROMETHAZINE [Concomitant]
     Active Substance: PROMETHAZINE HYDROCHLORIDE
     Indication: VOMITING
  4. ONDASETRON [ONDANSETRON] [Concomitant]
     Active Substance: ONDANSETRON
     Indication: NAUSEA
     Dosage: 8 MG, 34 MG TOTAL DAILY DOSAGE
     Route: 048
  5. KEYTRUDA [Suspect]
     Active Substance: PEMBROLIZUMAB
     Indication: CERVIX CANCER METASTATIC
     Dosage: UNK, EVERY (Q) 21 DAYS
     Route: 042
     Dates: start: 202009, end: 20201214

REACTIONS (34)
  - Gait disturbance [Unknown]
  - Exercise tolerance decreased [Unknown]
  - Pyrexia [Unknown]
  - Atelectasis [Unknown]
  - Decreased appetite [Unknown]
  - Neutropenia [Unknown]
  - Immune-mediated hepatitis [Recovered/Resolved]
  - Liver function test increased [Unknown]
  - Gastrooesophageal reflux disease [Unknown]
  - Balance disorder [Unknown]
  - Dyspnoea [Unknown]
  - Oesophagitis [Unknown]
  - Mobility decreased [Unknown]
  - Dyspnoea exertional [Unknown]
  - Toxicity to various agents [Unknown]
  - Orthopnoea [Unknown]
  - Pain [Unknown]
  - Tachycardia [Recovering/Resolving]
  - Hypokalaemia [Unknown]
  - Thrombocytopenia [Unknown]
  - Abdominal injury [Unknown]
  - Oral candidiasis [Unknown]
  - Asthenia [Unknown]
  - Malignant neoplasm progression [Unknown]
  - Pleural effusion [Unknown]
  - Muscular weakness [Unknown]
  - Performance status decreased [Unknown]
  - Posture abnormal [Unknown]
  - Oedema [Unknown]
  - Pneumonitis [Recovering/Resolving]
  - Seroma [Unknown]
  - Hypotension [Unknown]
  - Fatigue [Unknown]
  - Cough [Unknown]

NARRATIVE: CASE EVENT DATE: 2020
